FAERS Safety Report 8805741 (Version 1)
Quarter: 2012Q4

REPORT INFORMATION
  Report Type: Spontaneous
  Country: GB (occurrence: None)
  Receive Date: 20120917
  Receipt Date: 20120917
  Transmission Date: 20130627
  Serious: Yes (Life-Threatening)
  Sender: FDA-Public Use
  Company Number: 2012P1056318

PATIENT
  Age: 8 Year
  Sex: Male

DRUGS (4)
  1. FLECAINIDE [Suspect]
     Indication: SUPRAVENTRICULAR TACHYCARDIA
     Route: 048
     Dates: start: 2007, end: 20090523
  2. FLECAINIDE [Suspect]
     Indication: SUPRAVENTRICULAR TACHYCARDIA
     Route: 048
     Dates: start: 20090523, end: 2009
  3. FLECAINIDE [Suspect]
     Indication: SUPRAVENTRICULAR TACHYCARDIA
     Route: 048
     Dates: start: 2009, end: 2010
  4. FLECAINIDE [Suspect]
     Indication: SUPRAVENTRICULAR TACHYCARDIA
     Route: 048
     Dates: start: 2010

REACTIONS (11)
  - Supraventricular tachycardia [None]
  - Drug level below therapeutic [None]
  - Malaise [None]
  - Apnoea [None]
  - Hypotonia [None]
  - Loss of consciousness [None]
  - Agitation [None]
  - Electrocardiogram QRS complex prolonged [None]
  - Electrocardiogram QT prolonged [None]
  - Toxicity to various agents [None]
  - Food interaction [None]
